FAERS Safety Report 11944028 (Version 1)
Quarter: 2016Q1

REPORT INFORMATION
  Report Type: Spontaneous
  Country: US (occurrence: US)
  Receive Date: 20160125
  Receipt Date: 20160125
  Transmission Date: 20160526
  Serious: Yes (Hospitalization)
  Sender: FDA-Public Use
  Company Number: US-UNITED THERAPEUTICS-UNT-2015-007186

PATIENT
  Age: 70 Year
  Sex: Male
  Weight: 106.58 kg

DRUGS (2)
  1. TYVASO [Suspect]
     Active Substance: TREPROSTINIL
     Indication: PULMONARY ARTERIAL HYPERTENSION
     Dosage: 18-54 MICROGRAMS, QID
     Dates: start: 20150604
  2. TYVASO [Suspect]
     Active Substance: TREPROSTINIL
     Dosage: 18-54 MICROGRAMS, QID

REACTIONS (4)
  - Dizziness [Recovered/Resolved]
  - Chills [Unknown]
  - Pneumonia [Unknown]
  - Nausea [Unknown]

NARRATIVE: CASE EVENT DATE: 201506
